FAERS Safety Report 6146246-6 (Version None)
Quarter: 2009Q2

REPORT INFORMATION
  Report Type: 
  Country: None (occurrence: None)
  Receive Date: 20090406
  Receipt Date: 20090406
  Transmission Date: 20091009
  Serious: Yes (Other)
  Sender: FDA-Public Use
  Company Number: None

PATIENT
  Sex: Female
  Weight: 63.5036 kg

DRUGS (1)
  1. ESTRING VAGINAL RING PFIZER [Suspect]
     Indication: VULVOVAGINAL DRYNESS
     Dosage: INSERT 1 RING VAGINALLY EVERY 3 MONTHS
     Route: 067
     Dates: start: 20090306, end: 20090321

REACTIONS (1)
  - PALPITATIONS [None]
